FAERS Safety Report 16010211 (Version 2)
Quarter: 2019Q1

REPORT INFORMATION
  Report Type: Report from Study
  Country: US (occurrence: US)
  Receive Date: 20190225
  Receipt Date: 20190312
  Transmission Date: 20190418
  Serious: Yes (Hospitalization, Other)
  Sender: FDA-Public Use
  Company Number: US-ASTELLAS-2019US003816

PATIENT
  Age: 67 Year
  Sex: Male

DRUGS (1)
  1. ENZALUTAMIDE [Suspect]
     Active Substance: ENZALUTAMIDE
     Indication: PROSTATE CANCER
     Route: 048
     Dates: start: 20190119

REACTIONS (12)
  - Nausea [Not Recovered/Not Resolved]
  - Kidney infection [Unknown]
  - Urinary tract infection [Unknown]
  - Decreased appetite [Unknown]
  - Dehydration [Unknown]
  - Somnolence [Unknown]
  - Intentional dose omission [Unknown]
  - Diarrhoea [Unknown]
  - Device occlusion [Unknown]
  - Peripheral swelling [Recovering/Resolving]
  - Nasopharyngitis [Unknown]
  - Device related infection [Unknown]

NARRATIVE: CASE EVENT DATE: 20190124
